FAERS Safety Report 4694131-9 (Version None)
Quarter: 2005Q2

REPORT INFORMATION
  Report Type: 
  Country: None (occurrence: None)
  Receive Date: 20050616
  Receipt Date: 20050616
  Transmission Date: 20051028
  Serious: Yes (Hospitalization, Disabling, Other)
  Sender: FDA-Public Use
  Company Number: None

PATIENT
  Age: 57 Year
  Sex: Female
  Weight: 54.4316 kg

DRUGS (6)
  1. CORICIDIN D SRT [Suspect]
     Dosage: 3 TAB QD ORAL
     Route: 048
     Dates: start: 19990214, end: 19990215
  2. RU-TUSS [Suspect]
     Indication: SINUSITIS
     Dosage: ORAL
     Route: 048
  3. ROBITUSSIN [Concomitant]
  4. AMOXIL [Concomitant]
  5. CAFFEINE [Concomitant]
  6. NICOTINE [Concomitant]

REACTIONS (7)
  - CEREBROVASCULAR ACCIDENT [None]
  - DEPRESSION [None]
  - DIZZINESS [None]
  - HAEMORRHAGIC STROKE [None]
  - HYPOTENSION [None]
  - MITRAL VALVE PROLAPSE [None]
  - OSTEOARTHRITIS [None]
